FAERS Safety Report 25333693 (Version 3)
Quarter: 2025Q3

REPORT INFORMATION
  Report Type: Report from Study
  Country: US (occurrence: US)
  Receive Date: 20250520
  Receipt Date: 20250803
  Transmission Date: 20251020
  Serious: Yes (Hospitalization)
  Sender: ALEXION PHARMACEUTICALS
  Company Number: US-ASTRAZENECA-202505USA013713US

PATIENT
  Sex: Male

DRUGS (1)
  1. BENRALIZUMAB [Suspect]
     Active Substance: BENRALIZUMAB
     Indication: Asthma
     Dosage: 30 MILLIGRAM, Q8W
     Dates: start: 20250207

REACTIONS (7)
  - Nephrolithiasis [Unknown]
  - Sepsis [Unknown]
  - Blood creatinine increased [Unknown]
  - Blood urea increased [Unknown]
  - Carbon dioxide increased [Unknown]
  - Fluid retention [Unknown]
  - Dyspnoea [Unknown]
